FAERS Safety Report 9177446 (Version 1)
Quarter: 2013Q1

REPORT INFORMATION
  Report Type: Report from Study
  Country: US (occurrence: US)
  Receive Date: 20130321
  Receipt Date: 20130321
  Transmission Date: 20140127
  Serious: Yes (Other)
  Sender: FDA-Public Use
  Company Number: US-MYLANLABS-2013S1005616

PATIENT
  Age: 21 Year
  Sex: Female

DRUGS (3)
  1. AMNESTEEM CAPSULES [Suspect]
     Dates: start: 20121024, end: 20130303
  2. ORAL CONTRACEPTIVE NOS [Concomitant]
  3. PROZAC [Concomitant]
     Dates: start: 201301

REACTIONS (2)
  - Abortion induced [Recovered/Resolved]
  - Exposure during pregnancy [Recovered/Resolved]
